FAERS Safety Report 25773710 (Version 1)
Quarter: 2025Q3

REPORT INFORMATION
  Report Type: Spontaneous
  Country: EU (occurrence: EU)
  Receive Date: 20250908
  Receipt Date: 20250908
  Transmission Date: 20251021
  Serious: Yes (Hospitalization, Other)
  Sender: PFIZER
  Company Number: EU-ABBVIE-6439791

PATIENT
  Age: 85 Year
  Sex: Male

DRUGS (16)
  1. VORICONAZOLE [Suspect]
     Active Substance: VORICONAZOLE
  2. VENETOCLAX [Suspect]
     Active Substance: VENETOCLAX
     Route: 048
     Dates: start: 20250106, end: 20250106
  3. VENETOCLAX [Suspect]
     Active Substance: VENETOCLAX
     Route: 048
     Dates: start: 20250107, end: 20250107
  4. VENETOCLAX [Suspect]
     Active Substance: VENETOCLAX
     Route: 048
     Dates: start: 20250108, end: 20250116
  5. VENETOCLAX [Suspect]
     Active Substance: VENETOCLAX
     Route: 048
     Dates: start: 20250421, end: 202505
  6. VENETOCLAX [Suspect]
     Active Substance: VENETOCLAX
     Dosage: 100 MG, 1X/DAY, DAYS 1-28
     Route: 048
     Dates: start: 20250210, end: 20250310
  7. VENETOCLAX [Suspect]
     Active Substance: VENETOCLAX
     Route: 048
     Dates: start: 20250310
  8. VENETOCLAX [Suspect]
     Active Substance: VENETOCLAX
     Dosage: VENETOCLAX DOSE REDUCTION TO 21 DAYS
     Route: 048
     Dates: start: 20250730
  9. PIPERACILLIN AND TAZOBACTAM [Suspect]
     Active Substance: PIPERACILLIN SODIUM\TAZOBACTAM SODIUM
     Dates: start: 2025
  10. AZACITIDINE [Suspect]
     Active Substance: AZACITIDINE
     Dates: start: 20250210, end: 20250310
  11. AZACITIDINE [Suspect]
     Active Substance: AZACITIDINE
     Dates: start: 20250106, end: 20250116
  12. AZACITIDINE [Suspect]
     Active Substance: AZACITIDINE
     Dates: start: 20250730
  13. AZACITIDINE [Suspect]
     Active Substance: AZACITIDINE
     Dates: start: 20250310
  14. AZACITIDINE [Suspect]
     Active Substance: AZACITIDINE
     Dates: start: 20250421, end: 202505
  15. POSACONAZOLE [Concomitant]
     Active Substance: POSACONAZOLE
     Dosage: 300 MG, 1X/DAY
  16. ALLOPURINOL [Concomitant]
     Active Substance: ALLOPURINOL

REACTIONS (10)
  - Middle cerebral artery stroke [Unknown]
  - Leukopenia [Not Recovered/Not Resolved]
  - Pancytopenia [Unknown]
  - Pneumonia fungal [Unknown]
  - Neutropenia [Unknown]
  - Hallucination [Unknown]
  - Gait disturbance [Unknown]
  - Pyrexia [Recovered/Resolved]
  - Dyspnoea [Unknown]
  - Mobility decreased [Unknown]

NARRATIVE: CASE EVENT DATE: 20250101
